FAERS Safety Report 8431745-4 (Version None)
Quarter: 2012Q2

REPORT INFORMATION
  Report Type: 
  Country: None (occurrence: None)
  Receive Date: 20120613
  Receipt Date: 20120611
  Transmission Date: 20120825
  Serious: Yes (Hospitalization)
  Sender: FDA-Public Use
  Company Number: IT-SANOFI-AVENTIS-2012SA035378

PATIENT
  Age: 69 Year
  Sex: Female

DRUGS (8)
  1. LASIX [Suspect]
     Route: 048
     Dates: start: 20120502
  2. VALSARTAN [Suspect]
     Route: 048
     Dates: start: 20120502
  3. BISOPROLOL FUMARATE [Concomitant]
     Route: 048
     Dates: start: 20120502, end: 20120506
  4. ATORVASTATIN CALCIUM [Concomitant]
     Indication: ACUTE MYOCARDIAL INFARCTION
     Route: 048
     Dates: start: 20120502, end: 20120506
  5. ASPIRIN [Concomitant]
     Indication: ACUTE MYOCARDIAL INFARCTION
     Route: 048
     Dates: start: 20120502, end: 20120506
  6. LASITONE [Suspect]
     Dosage: STRENGTH:25 MG/37 MG
     Route: 048
     Dates: start: 20120502, end: 20120506
  7. RAMIPRIL [Suspect]
     Route: 048
     Dates: start: 20120502, end: 20120506
  8. PLAVIX [Concomitant]
     Indication: ACUTE MYOCARDIAL INFARCTION
     Route: 048
     Dates: start: 20120502, end: 20120506

REACTIONS (5)
  - RENAL FAILURE [None]
  - NASOPHARYNGITIS [None]
  - DRY MOUTH [None]
  - CHEST PAIN [None]
  - TREMOR [None]
